FAERS Safety Report 9395686 (Version 2)
Quarter: 2013Q3

REPORT INFORMATION
  Report Type: Spontaneous
  Country: US (occurrence: US)
  Receive Date: 20130711
  Receipt Date: 20130729
  Transmission Date: 20140515
  Serious: Yes (Other)
  Sender: FDA-Public Use
  Company Number: US-GILEAD-2013-0074934

PATIENT
  Sex: Female

DRUGS (2)
  1. LETAIRIS [Suspect]
     Indication: PRODUCT USED FOR UNKNOWN INDICATION
     Dosage: 5 MG, QD
     Dates: start: 20111219
  2. REVATIO [Concomitant]

REACTIONS (11)
  - Oxygen saturation decreased [Unknown]
  - Chills [Unknown]
  - Feeling cold [Unknown]
  - Influenza like illness [Unknown]
  - Fall [Unknown]
  - Somnolence [Unknown]
  - Dizziness [Unknown]
  - Asthenia [Unknown]
  - Asthenia [Unknown]
  - Fatigue [Not Recovered/Not Resolved]
  - Lethargy [Unknown]
